FAERS Safety Report 9437620 (Version 2)
Quarter: 2013Q4

REPORT INFORMATION
  Report Type: Spontaneous
  Country: US (occurrence: None)
  Receive Date: 20130731
  Receipt Date: 20131115
  Transmission Date: 20140711
  Serious: Yes (Hospitalization)
  Sender: FDA-Public Use
  Company Number: KV201300165

PATIENT
  Sex: Female

DRUGS (1)
  1. EVAMIST [Suspect]
     Indication: MENOPAUSAL SYMPTOMS
     Route: 062
     Dates: start: 201205, end: 201306

REACTIONS (4)
  - Vertigo [None]
  - Dyspnoea [None]
  - Hypertension [None]
  - Dizziness [None]
